FAERS Safety Report 18356928 (Version 1)
Quarter: 2020Q4

REPORT INFORMATION
  Report Type: Spontaneous
  Country: US (occurrence: US)
  Receive Date: 20201007
  Receipt Date: 20201007
  Transmission Date: 20210114
  Serious: Yes (Hospitalization)
  Sender: FDA-Public Use
  Company Number: US-MYLANLABS-2020M1084695

PATIENT
  Age: 4 Year
  Sex: Female

DRUGS (2)
  1. METHIMAZOLE. [Suspect]
     Active Substance: METHIMAZOLE
     Indication: BASEDOW^S DISEASE
     Dosage: UNK
     Route: 065
  2. CETIRIZINE [Concomitant]
     Active Substance: CETIRIZINE HYDROCHLORIDE
     Indication: IMMUNE TOLERANCE INDUCTION
     Dosage: 5 MILLIGRAM/KILOGRAM, QD
     Route: 065

REACTIONS (4)
  - Arthralgia [Recovered/Resolved]
  - Urticaria [Recovered/Resolved]
  - Myalgia [Recovered/Resolved]
  - Drug hypersensitivity [Recovered/Resolved]
